FAERS Safety Report 8897432 (Version 1)
Quarter: 2012Q4

REPORT INFORMATION
  Report Type: Spontaneous
  Country: US (occurrence: None)
  Receive Date: 20121108
  Receipt Date: 20121108
  Transmission Date: 20130627
  Serious: Yes (Disabling)
  Sender: FDA-Public Use
  Company Number: None

PATIENT
  Age: 77 Year
  Sex: Female
  Weight: 93.2 kg

DRUGS (2)
  1. TRASTUZUMAB [Suspect]
     Indication: BREAST ADENOCARCINOMA
     Dates: start: 20120215, end: 20121002
  2. TRASTUZUMAB [Suspect]
     Indication: BREAST ADENOCARCINOMA

REACTIONS (6)
  - Right ventricular failure [None]
  - Tricuspid valve incompetence [None]
  - Right ventricular dysfunction [None]
  - Dilatation ventricular [None]
  - Pulmonary arterial pressure increased [None]
  - Left ventricular dysfunction [None]
